FAERS Safety Report 8852880 (Version 1)
Quarter: 2012Q4

REPORT INFORMATION
  Report Type: 
  Country: NL (occurrence: NL)
  Receive Date: 20121022
  Receipt Date: 20121022
  Transmission Date: 20130627
  Serious: Yes (Hospitalization)
  Sender: FDA-Public Use
  Company Number: NL-PFIZER INC-2012258920

PATIENT
  Age: 64 Year
  Sex: Female

DRUGS (5)
  1. GENOTROPIN [Suspect]
     Dosage: 0.3 mg, 1x/day, 7 injections/week
     Route: 058
     Dates: start: 20010410
  2. HYDROCORTISONE [Concomitant]
     Indication: BLOOD CORTICOTROPHIN DECREASED
     Dosage: UNK
     Dates: start: 19870715
  3. ALENDRONIC ACID [Concomitant]
     Indication: OSTEOPOROSIS
     Dosage: UNK
     Dates: start: 20020413
  4. OMEPRAZOLE [Concomitant]
     Indication: DYSPEPSIA
     Dosage: UNK
     Dates: start: 20021017
  5. TAMOXIFEN [Concomitant]
     Indication: OSTEOPOROSIS
     Dosage: UNK
     Dates: start: 20021024

REACTIONS (2)
  - Fatigue [Unknown]
  - Dizziness [Unknown]
